FAERS Safety Report 13523974 (Version 2)
Quarter: 2017Q3

REPORT INFORMATION
  Report Type: Spontaneous
  Country: US (occurrence: US)
  Receive Date: 20170508
  Receipt Date: 20170810
  Transmission Date: 20171127
  Serious: No
  Sender: FDA-Public Use
  Company Number: US-VIFOR (INTERNATIONAL) INC.-VIT-2016-06072

PATIENT
  Age: 64 Year
  Sex: Female
  Weight: 49.94 kg

DRUGS (20)
  1. NEPHRO-VITE [Concomitant]
  2. PRAVASTATIN SODIUM. [Concomitant]
     Active Substance: PRAVASTATIN SODIUM
  3. LOSARTAN POTASSIUM. [Concomitant]
     Active Substance: LOSARTAN POTASSIUM
  4. FELODIPINE. [Concomitant]
     Active Substance: FELODIPINE
  5. ERGOCALCIFEROL. [Concomitant]
     Active Substance: ERGOCALCIFEROL
  6. FERROUS SULFATE. [Concomitant]
     Active Substance: FERROUS SULFATE
  7. ATENOLOL. [Concomitant]
     Active Substance: ATENOLOL
  8. PROCRIT [Concomitant]
     Active Substance: ERYTHROPOIETIN
  9. BUMEX [Concomitant]
     Active Substance: BUMETANIDE
  10. VELTASSA [Suspect]
     Active Substance: PATIROMER
     Indication: HYPERKALAEMIA
     Route: 048
     Dates: end: 2016
  11. ALLOPURINOL. [Concomitant]
     Active Substance: ALLOPURINOL
  12. OMEPRAZOLE. [Concomitant]
     Active Substance: OMEPRAZOLE
  13. FISH OIL [Concomitant]
     Active Substance: FISH OIL
  14. PANTOPRAZOLE SODIUM SESQUIHYDRATE [Concomitant]
     Active Substance: PANTOPRAZOLE SODIUM
  15. VELTASSA [Suspect]
     Active Substance: PATIROMER
     Route: 048
     Dates: start: 20161117, end: 2017
  16. AMITRIPTYLINE HYDROCHLORIDE. [Concomitant]
     Active Substance: AMITRIPTYLINE HYDROCHLORIDE
  17. HUMULIN NOS [Concomitant]
     Active Substance: INSULIN HUMAN
  18. BUMETANIDE. [Suspect]
     Active Substance: BUMETANIDE
     Indication: PRODUCT USED FOR UNKNOWN INDICATION
  19. COQ10 [Concomitant]
     Active Substance: UBIDECARENONE
  20. CALCITRIOL. [Concomitant]
     Active Substance: CALCITRIOL

REACTIONS (3)
  - Abdominal distension [Recovered/Resolved]
  - Constipation [Recovered/Resolved]
  - Dyspepsia [Recovered/Resolved]

NARRATIVE: CASE EVENT DATE: 2016
